FAERS Safety Report 10247626 (Version 2)
Quarter: 2014Q4

REPORT INFORMATION
  Report Type: Spontaneous
  Country: US (occurrence: US)
  Receive Date: 20140619
  Receipt Date: 20141216
  Transmission Date: 20150528
  Serious: Yes (Hospitalization, Disabling, Other)
  Sender: FDA-Public Use
  Company Number: US-009507513-1406USA007280

PATIENT
  Sex: Male

DRUGS (1)
  1. PROPECIA [Suspect]
     Active Substance: FINASTERIDE
     Indication: ANDROGENETIC ALOPECIA
     Dosage: 1 MG, QD
     Route: 048
     Dates: start: 19980730, end: 20110312

REACTIONS (28)
  - Depression [Not Recovered/Not Resolved]
  - Pterygium [Unknown]
  - Tooth extraction [Unknown]
  - Ejaculation failure [Not Recovered/Not Resolved]
  - Breast mass [Unknown]
  - Breast lump removal [Unknown]
  - Labyrinthitis [Unknown]
  - Reproductive tract disorder [Not Recovered/Not Resolved]
  - Medical device removal [Unknown]
  - Cystitis [Unknown]
  - Femur fracture [Unknown]
  - Arthropathy [Unknown]
  - Arthralgia [Unknown]
  - Rectal fistula repair [Unknown]
  - Cognitive disorder [Not Recovered/Not Resolved]
  - Intramedullary rod insertion [Unknown]
  - Ejaculation disorder [Not Recovered/Not Resolved]
  - Post procedural complication [Unknown]
  - Anxiety [Not Recovered/Not Resolved]
  - Libido decreased [Not Recovered/Not Resolved]
  - Erectile dysfunction [Not Recovered/Not Resolved]
  - Thinking abnormal [Not Recovered/Not Resolved]
  - Staphylococcal infection [Unknown]
  - Sexual dysfunction [Not Recovered/Not Resolved]
  - Blood potassium decreased [Unknown]
  - Erectile dysfunction [Not Recovered/Not Resolved]
  - Pterygium operation [Unknown]
  - Musculoskeletal stiffness [Unknown]

NARRATIVE: CASE EVENT DATE: 1998
